FAERS Safety Report 6494180-4 (Version None)
Quarter: 2009Q4

REPORT INFORMATION
  Report Type: 
  Country: None (occurrence: None)
  Receive Date: 20091214
  Receipt Date: 20090115
  Transmission Date: 20100525
  Serious: No
  Sender: FDA-Public Use
  Company Number: US-BRISTOL-MYERS SQUIBB COMPANY-14473326

PATIENT
  Age: 64 Year
  Sex: Female

DRUGS (2)
  1. ABILIFY [Suspect]
     Indication: BIPOLAR DISORDER
  2. LITHIUM [Concomitant]
     Dosage: 300MG-600MG AT VARIOUS TIMES

REACTIONS (2)
  - PARKINSONIAN GAIT [None]
  - THYROID FUNCTION TEST ABNORMAL [None]
